FAERS Safety Report 13884544 (Version 2)
Quarter: 2017Q3

REPORT INFORMATION
  Report Type: Report from Study
  Country: CN (occurrence: CN)
  Receive Date: 20170821
  Receipt Date: 20170908
  Transmission Date: 20171127
  Serious: Yes (Hospitalization)
  Sender: FDA-Public Use
  Company Number: CN-ROCHE-1915243

PATIENT
  Age: 65 Year
  Sex: Male
  Weight: 73 kg

DRUGS (30)
  1. SALBUTAMOL SULFATE [Concomitant]
     Active Substance: ALBUTEROL SULFATE
     Dosage: PREVENT ALLERGY
     Route: 065
     Dates: start: 20170401, end: 20170404
  2. LEVOFLOXACIN HYDROCHLORIDE [Concomitant]
     Active Substance: LEVOFLOXACIN HYDROCHLORIDE
     Dosage: ANTI-INFECTION
     Route: 065
     Dates: start: 20170331, end: 20170403
  3. OMEPRAZOLE SODIUM [Concomitant]
     Active Substance: OMEPRAZOLE SODIUM
     Dosage: PROTECT STOMACH
     Route: 065
     Dates: start: 20170331, end: 20170401
  4. DIAZEPAM. [Concomitant]
     Active Substance: DIAZEPAM
     Dosage: CALM, ANTICONVULSANTS
     Route: 065
     Dates: start: 20170331, end: 20170331
  5. TAMSULOSIN HYDROCHLORIDE. [Concomitant]
     Active Substance: TAMSULOSIN HYDROCHLORIDE
     Dosage: PROSTATE HYPERPLASIA CAUSED BY MICTURITION OBSTACLES
     Route: 065
     Dates: start: 20170402, end: 20170404
  6. NAPROXEN. [Concomitant]
     Active Substance: NAPROXEN
     Route: 048
     Dates: start: 201705, end: 20170717
  7. VITAMIN B6 [Concomitant]
     Active Substance: PYRIDOXINE HYDROCHLORIDE
     Dosage: VITAMIN B6 SUPPLEMENTATION
     Route: 065
     Dates: start: 20170331, end: 20170331
  8. CHLORPROMAZINE. [Concomitant]
     Active Substance: CHLORPROMAZINE
     Dosage: ANTI-VOMITING
     Route: 065
     Dates: start: 20170331, end: 20170331
  9. OXIRACETAM [Concomitant]
     Active Substance: OXIRACETAM
     Dosage: PROMOTE INTELLIGENCE
     Route: 065
     Dates: start: 20170331, end: 20170404
  10. ASMETON [Concomitant]
     Active Substance: AMINOPHYLLINE\CHLORPHENIRAMINE MALEATE\METHOXYPHENAMINE HYDROCHLORIDE\NOSCAPINE
     Indication: COUGH
     Route: 065
     Dates: start: 20170401
  11. INDOMETACIN [Concomitant]
     Active Substance: INDOMETHACIN
     Route: 065
     Dates: start: 20170327, end: 20170329
  12. INVERT SUGAR [Concomitant]
     Active Substance: INVERT SUGAR
     Dosage: COMPLEMENTARY ENERGY
     Route: 065
     Dates: start: 20170331, end: 20170331
  13. ATEZOLIZUMAB. [Suspect]
     Active Substance: ATEZOLIZUMAB
     Route: 042
     Dates: start: 20170406
  14. LEVOFLOXACIN. [Concomitant]
     Active Substance: LEVOFLOXACIN
     Route: 065
     Dates: start: 20170327, end: 20170329
  15. GLUCUROLACTONE [Concomitant]
     Active Substance: GLUCUROLACTONE
     Dosage: PROTECT LIVER
     Route: 065
     Dates: start: 20170331, end: 20170331
  16. AMBROXOL HYDROCHLORIDE [Concomitant]
     Active Substance: AMBROXOL HYDROCHLORIDE
     Indication: PRODUCTIVE COUGH
     Route: 065
     Dates: start: 20170401, end: 20170404
  17. LATAMOXEF SODIUM [Concomitant]
     Dosage: ANTI-INFECTION
     Route: 065
     Dates: start: 20170331, end: 20170403
  18. PHENOLPHTHALEIN [Concomitant]
     Active Substance: PHENOLPHTHALEIN
     Dosage: PURGE
     Route: 065
     Dates: start: 20170401, end: 20170404
  19. GINATON [Concomitant]
     Dosage: EXTRACT GINKGO BILOBA LEAVES TABLETS
     Route: 065
     Dates: start: 201706
  20. LEVOFLOXACIN HYDROCHLORIDE [Concomitant]
     Active Substance: LEVOFLOXACIN HYDROCHLORIDE
     Route: 065
     Dates: start: 20170330, end: 20170330
  21. ATEZOLIZUMAB. [Suspect]
     Active Substance: ATEZOLIZUMAB
     Indication: NON-SMALL CELL LUNG CANCER
     Dosage: DATE OF MOST RECENT DOSE PRIOR TO AE ONSET: 15/MAR/2017
     Route: 042
     Dates: start: 20170315
  22. GINATON [Concomitant]
     Indication: TINNITUS
     Dosage: TCM?IMPROVE BRAIN CIRCULATION
     Route: 065
     Dates: start: 20170403
  23. CEFUROXIME. [Concomitant]
     Active Substance: CEFUROXIME
     Route: 065
     Dates: start: 20170327, end: 20170329
  24. POTASSIUM CHLORIDE. [Concomitant]
     Active Substance: POTASSIUM CHLORIDE
     Dosage: ADD ELECTROLYTES
     Route: 065
     Dates: start: 20170331, end: 20170331
  25. MANNITOL. [Concomitant]
     Active Substance: MANNITOL
     Indication: POLYURIA
     Route: 065
     Dates: start: 20170331, end: 20170331
  26. AMINO ACID [Concomitant]
     Active Substance: AMINO ACIDS
     Dosage: COMPOUND?AMINO ACID SUPPLY
     Route: 065
     Dates: start: 20170331, end: 20170401
  27. ASMETON [Concomitant]
     Active Substance: AMINOPHYLLINE\CHLORPHENIRAMINE MALEATE\METHOXYPHENAMINE HYDROCHLORIDE\NOSCAPINE
     Route: 065
     Dates: start: 201607
  28. PROSCAR [Concomitant]
     Active Substance: FINASTERIDE
     Dosage: TREATMENT OF HYPERPLASIA OF PROSTATE
     Route: 065
     Dates: start: 20170402
  29. MONTELUKAST SODIUM. [Concomitant]
     Active Substance: MONTELUKAST SODIUM
     Indication: ASTHMA
     Route: 065
     Dates: start: 20170402
  30. MOXIFLOXACIN. [Concomitant]
     Active Substance: MOXIFLOXACIN
     Dosage: TREATMENT OF RESPIRATORY SYSTEM INFECTION
     Route: 065
     Dates: start: 20170403, end: 20170404

REACTIONS (1)
  - Altered state of consciousness [Recovered/Resolved]

NARRATIVE: CASE EVENT DATE: 20170331
